FAERS Safety Report 5209639-7 (Version None)
Quarter: 2007Q1

REPORT INFORMATION
  Report Type: 
  Country: None (occurrence: None)
  Receive Date: 20070111
  Receipt Date: 20061227
  Transmission Date: 20070707
  Serious: Yes (Hospitalization)
  Sender: FDA-Public Use
  Company Number: DSA_29174_2006

PATIENT
  Age: 93 Year
  Sex: Male

DRUGS (5)
  1. TAVOR [Suspect]
     Dosage: 1 MG Q DAY PO
     Route: 048
     Dates: start: 20060503
  2. REMERGIL [Suspect]
     Dosage: 15 MG Q DAY PO
     Route: 048
     Dates: start: 20060503, end: 20060511
  3. REMERGIL [Suspect]
     Dosage: 30 MG Q DAY PO
     Route: 048
     Dates: start: 20060512
  4. ZYPREXA [Suspect]
     Dosage: 2.5 MG Q DAY PO
     Route: 048
     Dates: start: 20060503, end: 20060608
  5. BELOC MITE [Concomitant]

REACTIONS (1)
  - URINARY RETENTION [None]
